FAERS Safety Report 5255475-5 (Version None)
Quarter: 2007Q1

REPORT INFORMATION
  Report Type: 
  Country: None (occurrence: None)
  Receive Date: 20061201
  Receipt Date: 20060925
  Transmission Date: 20070707
  Serious: Yes (Hospitalization)
  Sender: FDA-Public Use
  Company Number: 2006MP001067

PATIENT
  Age: 75 Year
  Sex: Male
  Weight: 94 kg

DRUGS (2)
  1. DACOGEN [Suspect]
     Indication: MYELODYSPLASTIC SYNDROME
     Dosage: 20 MG/M**2; QD; IV
     Route: 042
     Dates: start: 20060911, end: 20060915
  2. NEULASTA [Concomitant]

REACTIONS (4)
  - ESCHERICHIA SEPSIS [None]
  - OFF LABEL USE [None]
  - PANCYTOPENIA [None]
  - THROMBOCYTOPENIA [None]
